FAERS Safety Report 7912283-1 (Version None)
Quarter: 2011Q4

REPORT INFORMATION
  Report Type: 
  Country: None (occurrence: None)
  Receive Date: 20111114
  Receipt Date: 20100707
  Transmission Date: 20120403
  Serious: Yes (Other)
  Sender: FDA-Public Use
  Company Number: US-BAYER-201010229NA

PATIENT
  Age: 57 Year
  Sex: Female
  Weight: 79.819 kg

DRUGS (41)
  1. OMNISCAN [Suspect]
     Indication: NUCLEAR MAGNETIC RESONANCE IMAGING
  2. MULTIHANCE [Suspect]
     Indication: NUCLEAR MAGNETIC RESONANCE IMAGING
  3. PREMPRO [Concomitant]
  4. FOSRENOL [Concomitant]
  5. LYRICA [Concomitant]
  6. BECONASE [Concomitant]
  7. COMPAZINE [Concomitant]
  8. FERRLECIT [Concomitant]
  9. RENAGEL [Concomitant]
  10. DIOVAN [Concomitant]
  11. NEPHROCAPS [Concomitant]
  12. OPTIMARK [Suspect]
     Indication: ANGIOGRAM
  13. PROHANCE [Suspect]
     Indication: ANGIOGRAM
  14. PROHANCE [Suspect]
     Indication: NUCLEAR MAGNETIC RESONANCE IMAGING
  15. ADVAIR DISKUS 100/50 [Concomitant]
  16. ALBUTEROL [Concomitant]
  17. SODIUM THIOSULFATE [Concomitant]
  18. PROTONIX [Concomitant]
  19. MIRAPEX [Concomitant]
  20. OPTIMARK [Suspect]
     Indication: NUCLEAR MAGNETIC RESONANCE IMAGING
  21. AMITRIPTYLINE HCL [Concomitant]
  22. MAGNEVIST [Suspect]
     Indication: ANGIOGRAM
     Dosage: 17 ML, ONCE
     Route: 042
     Dates: start: 19951127, end: 19951127
  23. MAGNEVIST [Suspect]
     Indication: NUCLEAR MAGNETIC RESONANCE IMAGING
     Dosage: UNK
     Route: 042
     Dates: start: 20061214, end: 20061214
  24. OMNISCAN [Suspect]
     Indication: ANGIOGRAM
  25. COUMADIN [Concomitant]
  26. EPOGEN [Concomitant]
  27. MAGNEVIST [Suspect]
     Indication: NUCLEAR MAGNETIC RESONANCE IMAGING BRAIN
  28. TOPROL-XL [Concomitant]
  29. SENSIPAR [Concomitant]
  30. CLIMARA PRO [Concomitant]
  31. FUROSEMIDE [Concomitant]
  32. NEURONTIN [Concomitant]
  33. LACTULOSE [Concomitant]
  34. MULTIHANCE [Suspect]
     Indication: ANGIOGRAM
  35. PROVENTIL [Concomitant]
     Route: 055
  36. HYDROCHLOROTHIAZIDE [Concomitant]
  37. ZOLOFT [Concomitant]
  38. REGLAN [Concomitant]
  39. PROCRIT [Concomitant]
  40. ZEMPLAR [Concomitant]
  41. NORVASC [Concomitant]

REACTIONS (14)
  - PAIN [None]
  - LICHENIFICATION [None]
  - OCULAR ICTERUS [None]
  - NEPHROGENIC SYSTEMIC FIBROSIS [None]
  - SKIN INDURATION [None]
  - DYSSTASIA [None]
  - JOINT CONTRACTURE [None]
  - OEDEMA PERIPHERAL [None]
  - SKIN HYPERPIGMENTATION [None]
  - SKIN TIGHTNESS [None]
  - JOINT RANGE OF MOTION DECREASED [None]
  - GAIT DISTURBANCE [None]
  - PULMONARY FIBROSIS [None]
  - ARTHRALGIA [None]
